FAERS Safety Report 20737035 (Version 1)
Quarter: 2022Q2

REPORT INFORMATION
  Report Type: Spontaneous
  Country: CN (occurrence: CN)
  Receive Date: 20220421
  Receipt Date: 20220421
  Transmission Date: 20220721
  Serious: Yes (Life-Threatening, Hospitalization)
  Sender: FDA-Public Use
  Company Number: CN-SCALL-2022-CN-000088

PATIENT
  Age: 61 Year
  Sex: Female
  Weight: 70 kg

DRUGS (4)
  1. RABEPRAZOLE SODIUM [Suspect]
     Active Substance: RABEPRAZOLE SODIUM
     Indication: Helicobacter infection
     Dosage: 10 MG,12 HR
     Route: 048
     Dates: start: 20220317, end: 20220325
  2. FURAZOLIDONE [Suspect]
     Active Substance: FURAZOLIDONE
     Dosage: 0.1 GM, 8 HR
     Route: 048
     Dates: start: 20220317, end: 20220325
  3. AMOXICILLIN [Suspect]
     Active Substance: AMOXICILLIN
     Dosage: 1 GM,12 HR
     Route: 048
     Dates: start: 20220317, end: 20220325
  4. BISMUTH SUBCITRATE [Suspect]
     Active Substance: BISMUTH SUBCITRATE
     Dosage: 0.6 GM,12 HR
     Route: 048
     Dates: start: 20220317, end: 20220325

REACTIONS (5)
  - Erythema [Recovering/Resolving]
  - Pruritus [Recovering/Resolving]
  - Urticaria [Recovering/Resolving]
  - Skin warm [Recovering/Resolving]
  - Dry skin [Recovering/Resolving]

NARRATIVE: CASE EVENT DATE: 20220329
